FAERS Safety Report 14060643 (Version 4)
Quarter: 2018Q1

REPORT INFORMATION
  Report Type: Report from Study
  Country: GB (occurrence: GB)
  Receive Date: 20171007
  Receipt Date: 20180327
  Transmission Date: 20180508
  Serious: Yes (Hospitalization, Other)
  Sender: FDA-Public Use
  Company Number: GB-ROCHE-1699652

PATIENT
  Sex: Female

DRUGS (1)
  1. ESBRIET [Suspect]
     Active Substance: PIRFENIDONE
     Indication: IDIOPATHIC PULMONARY FIBROSIS
     Route: 048
     Dates: start: 20140901

REACTIONS (9)
  - Pulmonary arterial hypertension [Unknown]
  - Cardiac failure [Unknown]
  - Lung disorder [Unknown]
  - Hypophagia [Unknown]
  - Asthenia [Unknown]
  - General physical health deterioration [Unknown]
  - Heart rate increased [Unknown]
  - Vomiting [Unknown]
  - Lower respiratory tract infection [Unknown]
